FAERS Safety Report 23497670 (Version 3)
Quarter: 2024Q3

REPORT INFORMATION
  Report Type: Spontaneous
  Country: US (occurrence: US)
  Receive Date: 20240208
  Receipt Date: 20240809
  Transmission Date: 20241016
  Serious: Yes (Other)
  Sender: PFIZER
  Company Number: US-PFIZER INC-PV202400016399

PATIENT
  Age: 31 Year
  Sex: Female

DRUGS (2)
  1. MEDROXYPROGESTERONE ACETATE [Suspect]
     Active Substance: MEDROXYPROGESTERONE ACETATE
     Indication: Endometriosis
     Dosage: 150 MG, EVERY 3 MONTHS
     Route: 030
     Dates: start: 2022
  2. MEDROXYPROGESTERONE ACETATE [Suspect]
     Active Substance: MEDROXYPROGESTERONE ACETATE
     Indication: Polycystic ovarian syndrome

REACTIONS (8)
  - Coeliac disease [Unknown]
  - Off label use [Unknown]
  - Drug hypersensitivity [Unknown]
  - Injection site pain [Recovering/Resolving]
  - Brain fog [Unknown]
  - Ear pain [Unknown]
  - Pain in extremity [Recovering/Resolving]
  - Pain [Recovering/Resolving]

NARRATIVE: CASE EVENT DATE: 20220101
